FAERS Safety Report 8185660-4 (Version None)
Quarter: 2012Q1

REPORT INFORMATION
  Report Type: 
  Country: None (occurrence: None)
  Receive Date: 20120305
  Receipt Date: 20120228
  Transmission Date: 20120608
  Serious: Yes (Death, Other)
  Sender: FDA-Public Use
  Company Number: US-CELGENEUS-163-20785-12023037

PATIENT
  Age: 65 Year

DRUGS (3)
  1. DEXAMETHASONE [Suspect]
     Indication: NATURAL KILLER-CELL LYMPHOBLASTIC LYMPHOMA
     Dosage: 40 MILLIGRAM
     Route: 065
     Dates: start: 20091102
  2. BORTEZOMIB [Suspect]
     Indication: NATURAL KILLER-CELL LYMPHOBLASTIC LYMPHOMA
     Dosage: 1 MILLIGRAM/SQ. METER
     Route: 065
     Dates: start: 20091102
  3. THALOMID [Suspect]
     Indication: NATURAL KILLER-CELL LYMPHOBLASTIC LYMPHOMA
     Dosage: 50 MILLIGRAM
     Route: 048
     Dates: start: 20091102

REACTIONS (7)
  - RESPIRATORY FAILURE [None]
  - ANAEMIA [None]
  - DISSEMINATED INTRAVASCULAR COAGULATION [None]
  - THROMBOCYTOPENIA [None]
  - LUNG INFILTRATION [None]
  - TUMOUR LYSIS SYNDROME [None]
  - RENAL FAILURE [None]
